FAERS Safety Report 22138825 (Version 3)
Quarter: 2024Q2

REPORT INFORMATION
  Report Type: Report from Study
  Country: US (occurrence: US)
  Receive Date: 20230327
  Receipt Date: 20240430
  Transmission Date: 20240715
  Serious: Yes (Other)
  Sender: FDA-Public Use
  Company Number: US-ABBVIE-4704262

PATIENT
  Sex: Male

DRUGS (2)
  1. VENCLEXTA [Suspect]
     Active Substance: VENETOCLAX
     Indication: Myeloproliferative neoplasm
     Dosage: FORM STRENGTH WAS 100 MILLIGRAM
     Route: 048
  2. VENCLEXTA [Suspect]
     Active Substance: VENETOCLAX
     Indication: Myeloproliferative neoplasm
     Dosage: DECREASED DOSAGE
     Route: 048

REACTIONS (5)
  - Surgery [Unknown]
  - Off label use [Unknown]
  - Laboratory test abnormal [Unknown]
  - Leukaemia [Unknown]
  - Immunodeficiency [Unknown]
